FAERS Safety Report 11180022 (Version 3)
Quarter: 2015Q3

REPORT INFORMATION
  Report Type: Spontaneous
  Country: JP (occurrence: JP)
  Receive Date: 20150611
  Receipt Date: 20150727
  Transmission Date: 20151125
  Serious: Yes (Death)
  Sender: FDA-Public Use
  Company Number: JP-RECORDATI RARE DISEASES-JP-R13005-15-00075

PATIENT
  Age: 29 Day
  Sex: Male
  Weight: .44 kg

DRUGS (1)
  1. INDACIN [Suspect]
     Active Substance: INDOMETHACIN
     Indication: PATENT DUCTUS ARTERIOSUS
     Route: 065

REACTIONS (4)
  - Hepatic failure [Fatal]
  - Necrotising enterocolitis neonatal [Fatal]
  - Gastrointestinal perforation [Fatal]
  - Haemorrhagic diathesis [Fatal]
